FAERS Safety Report 11238380 (Version 2)
Quarter: 2015Q3

REPORT INFORMATION
  Report Type: Spontaneous
  Country: None (occurrence: GB)
  Receive Date: 20150704
  Receipt Date: 20150720
  Transmission Date: 20151125
  Serious: Yes (Other)
  Sender: FDA-Public Use
  Company Number: GB-MEDAC PHARMA, INC.-1040344

PATIENT
  Sex: Female

DRUGS (9)
  1. ERIBULIN [Suspect]
     Active Substance: ERIBULIN
  2. METHOTREXATE [Suspect]
     Active Substance: METHOTREXATE
     Indication: BREAST CANCER METASTATIC
  3. CARBOPLATIN. [Suspect]
     Active Substance: CARBOPLATIN
  4. CYCLOPHOSPHAMIDE. [Suspect]
     Active Substance: CYCLOPHOSPHAMIDE
  5. PACLITAXEL. [Suspect]
     Active Substance: PACLITAXEL
  6. CAPECITABINE. [Suspect]
     Active Substance: CAPECITABINE
  7. ADRIAMYCIN [Suspect]
     Active Substance: DOXORUBICIN HYDROCHLORIDE
  8. FLUOROURACIL. [Suspect]
     Active Substance: FLUOROURACIL
  9. VINORELBINE [Suspect]
     Active Substance: VINORELBINE\VINORELBINE TARTRATE

REACTIONS (4)
  - Immobile [Unknown]
  - Malignant neoplasm progression [Unknown]
  - Bone pain [Unknown]
  - Drug ineffective [Unknown]
